FAERS Safety Report 9295125 (Version 1)
Quarter: 2013Q2

REPORT INFORMATION
  Report Type: Report from Study
  Country: BR (occurrence: BR)
  Receive Date: 20130517
  Receipt Date: 20130517
  Transmission Date: 20140414
  Serious: Yes (Other)
  Sender: FDA-Public Use
  Company Number: PHHY2013BR031900

PATIENT
  Sex: Female
  Weight: 70 kg

DRUGS (9)
  1. ACLASTA [Suspect]
     Dosage: 5 MG/100ML, ONCE A YEAR
     Route: 042
     Dates: start: 201211
  2. CYMBALTA [Concomitant]
     Dosage: UNK UKN, UNK
  3. RISPERIDON [Concomitant]
     Dosage: UNK UKN, UNK
  4. LEXOTAN [Concomitant]
     Dosage: UNK UKN, UNK
  5. EXELON [Concomitant]
     Dosage: UNK UKN, UNK
  6. OSCAL [Concomitant]
     Dosage: UNK UKN, UNK
  7. DEPURA [Concomitant]
     Dosage: UNK UKN, UNK
  8. REFORGAN [Concomitant]
     Dosage: UNK UKN, UNK
  9. CALCIUM [Concomitant]
     Indication: OSTEOPOROSIS
     Dosage: 2 UNK, DAILY
     Route: 048

REACTIONS (3)
  - Fall [Unknown]
  - Arthralgia [Not Recovered/Not Resolved]
  - Pain [Unknown]
